FAERS Safety Report 9482474 (Version 1)
Quarter: 2013Q3

REPORT INFORMATION
  Report Type: Spontaneous
  Country: BR (occurrence: None)
  Receive Date: 20130822
  Receipt Date: 20130822
  Transmission Date: 20140515
  Serious: Yes (Other)
  Sender: FDA-Public Use
  Company Number: 2013-364

PATIENT
  Age: 30 Year
  Sex: Male

DRUGS (2)
  1. CLOZAPINE [Suspect]
     Indication: SCHIZOPHRENIA
     Route: 048
  2. CITALOPRAM [Concomitant]

REACTIONS (6)
  - Dengue fever [None]
  - Schizophrenia [None]
  - Catatonia [None]
  - Tremor [None]
  - Syncope [None]
  - Therapeutic response decreased [None]
